FAERS Safety Report 10638648 (Version 1)
Quarter: 2014Q4

REPORT INFORMATION
  Report Type: Spontaneous
  Country: US (occurrence: US)
  Receive Date: 20141208
  Receipt Date: 20141208
  Transmission Date: 20150529
  Serious: No
  Sender: FDA-Public Use
  Company Number: US-SA-2014SA126621

PATIENT
  Age: 30 Year
  Sex: Female

DRUGS (2)
  1. FERRLECIT [Suspect]
     Active Substance: SODIUM FERRIC GLUCONATE COMPLEX
     Indication: BLOOD IRON DECREASED
     Dosage: FORM : INFUSION?FREQUENCY : EVERY 2 WEEK
     Route: 065
     Dates: start: 20140905
  2. FERRLECIT [Suspect]
     Active Substance: SODIUM FERRIC GLUCONATE COMPLEX
     Indication: BLOOD IRON DECREASED
     Dosage: FORM : INFUSION?FREQUENCY  :EVERY 2 WEEK
     Route: 065
     Dates: start: 201404

REACTIONS (1)
  - Rash [Not Recovered/Not Resolved]
